FAERS Safety Report 8042622-5 (Version None)
Quarter: 2012Q1

REPORT INFORMATION
  Report Type: 
  Country: None (occurrence: None)
  Receive Date: 20120112
  Receipt Date: 20120111
  Transmission Date: 20120608
  Serious: Yes (Life-Threatening, Hospitalization)
  Sender: FDA-Public Use
  Company Number: JP-ABBOTT-06P-087-0334628-00

PATIENT
  Sex: Male

DRUGS (7)
  1. LEUPROLIDE ACETATE [Suspect]
     Route: 058
     Dates: start: 20060415, end: 20060520
  2. DECADRON [Concomitant]
     Indication: PRODUCT USED FOR UNKNOWN INDICATION
     Route: 048
     Dates: start: 20050917
  3. ESTRACYT [Concomitant]
     Indication: PRODUCT USED FOR UNKNOWN INDICATION
     Route: 048
     Dates: start: 20020616
  4. ASPIRIN [Concomitant]
     Indication: PRODUCT USED FOR UNKNOWN INDICATION
     Route: 048
     Dates: start: 20020615
  5. SELBEX [Concomitant]
     Indication: PRODUCT USED FOR UNKNOWN INDICATION
     Route: 048
     Dates: start: 20050917
  6. LEUPROLIDE ACETATE [Suspect]
     Indication: PROSTATE CANCER
     Route: 058
     Dates: start: 20010901, end: 20020301
  7. PRIMPERAN TAB [Concomitant]
     Indication: PRODUCT USED FOR UNKNOWN INDICATION
     Route: 048
     Dates: start: 20050917

REACTIONS (13)
  - INJECTION SITE PUSTULE [None]
  - INJECTION SITE ERYTHEMA [None]
  - FALL [None]
  - PALLOR [None]
  - GENERALISED ERYTHEMA [None]
  - ANAPHYLACTIC SHOCK [None]
  - FEELING HOT [None]
  - SKIN REACTION [None]
  - INJECTION SITE INDURATION [None]
  - INJECTION SITE PRURITUS [None]
  - NAUSEA [None]
  - LOSS OF CONSCIOUSNESS [None]
  - URTICARIA [None]
